FAERS Safety Report 6399911-X (Version None)
Quarter: 2009Q4

REPORT INFORMATION
  Report Type: 
  Country: None (occurrence: None)
  Receive Date: 20091014
  Receipt Date: 20091005
  Transmission Date: 20100525
  Serious: Yes (Death)
  Sender: FDA-Public Use
  Company Number: CA-ALLERGAN-0908758US

PATIENT
  Age: 22 Year
  Sex: Male

DRUGS (7)
  1. BOTOX [Suspect]
     Indication: MUSCLE SPASTICITY
     Dosage: 400 UNITS, SINGLE
     Route: 030
     Dates: start: 20090421, end: 20090421
  2. BOTOX [Suspect]
     Dosage: 400 UNK, SINGLE
     Route: 030
     Dates: start: 20090105, end: 20090105
  3. BOTOX [Suspect]
     Dosage: 400 UNK, SINGLE
     Route: 030
     Dates: start: 20060620, end: 20060620
  4. BOTOX [Suspect]
     Dosage: 400 UNK, SINGLE
     Route: 030
     Dates: start: 20051208, end: 20051208
  5. BOTOX [Suspect]
     Dosage: 400 UNK, SINGLE
     Route: 030
     Dates: start: 20050928, end: 20050928
  6. BACLOFEN [Concomitant]
     Dosage: 30 MG AM, 20 MG NOON, 30 MG HS
  7. TIZANIDINE HCL [Concomitant]
     Dosage: 8 MG AM, 8 MG NOON, 12 MG HS

REACTIONS (1)
  - DIAPHRAGMATIC PARALYSIS [None]
